FAERS Safety Report 6316193-5 (Version None)
Quarter: 2009Q3

REPORT INFORMATION
  Report Type: 
  Country: None (occurrence: None)
  Receive Date: 20090820
  Receipt Date: 20090817
  Transmission Date: 20100115
  Serious: Yes (Hospitalization)
  Sender: FDA-Public Use
  Company Number: CA-ASTRAZENECA-2009SE08460

PATIENT
  Age: 67 Year
  Sex: Male

DRUGS (5)
  1. SYMBICORT [Suspect]
     Indication: ASTHMA
     Dosage: 2 PUFFS TWICE A DAY
     Route: 055
  2. BRICANYL [Suspect]
     Indication: ASTHMA
     Route: 055
  3. HYDROCHLOROTHIAZIDE [Concomitant]
     Indication: HYPERTENSION
  4. ACCUPRIIL [Concomitant]
     Indication: HYPERTENSION
  5. PREVACID [Concomitant]
     Indication: DYSPEPSIA

REACTIONS (1)
  - BURNING SENSATION [None]
